FAERS Safety Report 5834357-1 (Version None)
Quarter: 2008Q3

REPORT INFORMATION
  Report Type: 
  Country: None (occurrence: None)
  Receive Date: 20080805
  Receipt Date: 20080724
  Transmission Date: 20090109
  Serious: Yes (Hospitalization, Other)
  Sender: FDA-Public Use
  Company Number: US-PFIZER INC-2008042104

PATIENT
  Sex: Male
  Weight: 72 kg

DRUGS (5)
  1. DILANTIN [Suspect]
     Indication: CONVULSION
  2. KEPPRA [Concomitant]
  3. CEPHALEXIN [Concomitant]
  4. ADVAIR DISKUS 100/50 [Concomitant]
  5. OXYGEN [Concomitant]

REACTIONS (5)
  - ANTICONVULSANT DRUG LEVEL BELOW THERAPEUTIC [None]
  - APNOEA [None]
  - CONVULSION [None]
  - SKIN DISCOLOURATION [None]
  - THERAPEUTIC RESPONSE UNEXPECTED WITH DRUG SUBSTITUTION [None]
